FAERS Safety Report 8124388-3 (Version None)
Quarter: 2012Q1

REPORT INFORMATION
  Report Type: 
  Country: None (occurrence: None)
  Receive Date: 20120209
  Receipt Date: 20120131
  Transmission Date: 20120608
  Serious: Yes (Hospitalization)
  Sender: FDA-Public Use
  Company Number: CA-JNJFOC-20120202703

PATIENT
  Sex: Female
  Weight: 70 kg

DRUGS (4)
  1. REMICADE [Suspect]
     Indication: CROHN'S DISEASE
     Route: 042
     Dates: start: 20111011
  2. SUPEUDOL [Concomitant]
     Route: 065
  3. PAIN MEDICATION [Concomitant]
     Route: 065
  4. ANTI-INFLAMMATORY DRUG [Concomitant]
     Route: 065

REACTIONS (1)
  - NEPHROLITHIASIS [None]
